FAERS Safety Report 21354765 (Version 1)
Quarter: 2022Q3

REPORT INFORMATION
  Report Type: Spontaneous
  Country: US (occurrence: US)
  Receive Date: 20220920
  Receipt Date: 20220920
  Transmission Date: 20221026
  Serious: No
  Sender: FDA-Public Use
  Company Number: US-PFIZER INC-202201171360

PATIENT
  Age: 85 Year
  Sex: Female

DRUGS (3)
  1. PROTONIX [Interacting]
     Active Substance: PANTOPRAZOLE SODIUM
     Dosage: UNK
  2. ZOFRAN [Interacting]
     Active Substance: ONDANSETRON HYDROCHLORIDE
     Dosage: UNK
  3. IBRANCE [Concomitant]
     Active Substance: PALBOCICLIB
     Dosage: UNK

REACTIONS (1)
  - Drug interaction [Unknown]
